FAERS Safety Report 24060946 (Version 6)
Quarter: 2025Q3

REPORT INFORMATION
  Report Type: Report from Study
  Country: CA (occurrence: CA)
  Receive Date: 20240708
  Receipt Date: 20250926
  Transmission Date: 20251021
  Serious: Yes (Hospitalization, Other)
  Sender: CSL BEHRING
  Company Number: CA-BEH-2024174960

PATIENT
  Age: 74 Year
  Sex: Female
  Weight: 36 kg

DRUGS (28)
  1. HIZENTRA [Suspect]
     Active Substance: HUMAN IMMUNOGLOBULIN G
     Indication: Secondary immunodeficiency
     Dosage: 8 G, QW
     Route: 065
     Dates: start: 20240629
  2. HIZENTRA [Suspect]
     Active Substance: HUMAN IMMUNOGLOBULIN G
     Dosage: 8 G, QW
     Route: 065
     Dates: start: 20240629
  3. HIZENTRA [Suspect]
     Active Substance: HUMAN IMMUNOGLOBULIN G
     Dosage: UNK UNK, QW
     Route: 065
     Dates: start: 20240629
  4. HIZENTRA [Suspect]
     Active Substance: HUMAN IMMUNOGLOBULIN G
     Route: 065
     Dates: start: 20250131
  5. HIZENTRA [Suspect]
     Active Substance: HUMAN IMMUNOGLOBULIN G
     Dosage: 6 G, QW
     Route: 058
     Dates: start: 20240629
  6. AZELASTINE HYDROCHLORIDE\FLUTICASONE FUROATE [Concomitant]
     Active Substance: AZELASTINE HYDROCHLORIDE\FLUTICASONE FUROATE
  7. SINEMET [Concomitant]
     Active Substance: CARBIDOPA\LEVODOPA
     Indication: Product used for unknown indication
     Route: 065
  8. SACCHAROMYCES CEREVISIAE [Concomitant]
     Active Substance: SACCHAROMYCES CEREVISIAE
  9. ALBUTEROL SULFATE [Concomitant]
     Active Substance: ALBUTEROL SULFATE
  10. Oracort [Concomitant]
     Indication: Product used for unknown indication
     Route: 065
  11. MAGNESIUM [Concomitant]
     Active Substance: MAGNESIUM
  12. PROLIA [Concomitant]
     Active Substance: DENOSUMAB
  13. VITAMIN D3 [Concomitant]
     Active Substance: CHOLECALCIFEROL
  14. ACETAMINOPHEN [Concomitant]
     Active Substance: ACETAMINOPHEN
  15. Koffex dm [Concomitant]
  16. DOMPERIDONE [Concomitant]
     Active Substance: DOMPERIDONE
     Indication: Product used for unknown indication
  17. COTAZYM [Concomitant]
     Active Substance: PANCRELIPASE AMYLASE\PANCRELIPASE LIPASE\PANCRELIPASE PROTEASE
  18. LOPERAMIDE [Concomitant]
     Active Substance: LOPERAMIDE
  19. MIDODRINE [Concomitant]
     Active Substance: MIDODRINE
  20. VITAMINS [Concomitant]
     Active Substance: VITAMINS
  21. SODIUM PHOSPHATE [Concomitant]
     Active Substance: SODIUM PHOSPHATE
  22. LANSOPRAZOLE [Concomitant]
     Active Substance: LANSOPRAZOLE
  23. SODIUM CHLORIDE [Concomitant]
     Active Substance: SODIUM CHLORIDE
  24. BIOTENE NOS [Concomitant]
     Active Substance: UNSPECIFIED INGREDIENT
  25. SODIUM BICARBONATE [Concomitant]
     Active Substance: SODIUM BICARBONATE
  26. RITUXIMAB [Concomitant]
     Active Substance: RITUXIMAB
  27. PANCREATIN [Concomitant]
     Active Substance: PANCRELIPASE
  28. CHOLECALCIFEROL [Concomitant]
     Active Substance: CHOLECALCIFEROL

REACTIONS (9)
  - Hospitalisation [Unknown]
  - Nervous system disorder [Unknown]
  - Pyrexia [Unknown]
  - Patient dissatisfaction with treatment [Unknown]
  - Gastrostomy tube removal [Unknown]
  - Illness [Unknown]
  - Weight increased [Unknown]
  - Infusion site pain [Unknown]
  - Alanine aminotransferase increased [Unknown]

NARRATIVE: CASE EVENT DATE: 20250131
